FAERS Safety Report 13615707 (Version 3)
Quarter: 2017Q3

REPORT INFORMATION
  Report Type: Spontaneous
  Country: BR (occurrence: BR)
  Receive Date: 20170606
  Receipt Date: 20170705
  Transmission Date: 20171127
  Serious: Yes (Hospitalization, Other)
  Sender: FDA-Public Use
  Company Number: BR-PFIZER INC-2017241129

PATIENT
  Age: 49 Year
  Sex: Male

DRUGS (3)
  1. TIMOLOL MALEATE. [Concomitant]
     Active Substance: TIMOLOL MALEATE
     Dosage: UNK
     Dates: start: 1986
  2. XALATAN [Suspect]
     Active Substance: LATANOPROST
     Dosage: 1 DROP IN THE OPERATED EYE AT NIGHT
     Dates: start: 2001, end: 2017
  3. XALATAN [Suspect]
     Active Substance: LATANOPROST
     Indication: GLAUCOMA
     Dosage: 1 DROP IN THE OPERATED EYE (LEFT), 1X/DAY (AT NIGHT)
     Route: 047
     Dates: start: 1986, end: 2001

REACTIONS (10)
  - Condition aggravated [Not Recovered/Not Resolved]
  - Eye pain [Not Recovered/Not Resolved]
  - Visual impairment [Not Recovered/Not Resolved]
  - Eye swelling [Not Recovered/Not Resolved]
  - Intentional product use issue [Recovered/Resolved]
  - Glaucoma [Not Recovered/Not Resolved]
  - Optic atrophy [Not Recovered/Not Resolved]
  - Ocular discomfort [Not Recovered/Not Resolved]
  - Eye inflammation [Not Recovered/Not Resolved]
  - Eye disorder [Not Recovered/Not Resolved]

NARRATIVE: CASE EVENT DATE: 2001
